FAERS Safety Report 7798427 (Version 7)
Quarter: 2014Q1

REPORT INFORMATION
  Report Type: Report from Study
  Country: US (occurrence: US)
  Receive Date: 20110203
  Receipt Date: 20140203
  Transmission Date: 20141002
  Serious: Yes (Hospitalization)
  Sender: FDA-Public Use
  Company Number: US-ASTRAZENECA-2011SE04545

PATIENT
  Age: 76 Year
  Sex: Female
  Weight: 89.1 kg

DRUGS (3)
  1. NEXIUM [Suspect]
     Indication: GASTRITIS PROPHYLAXIS
     Route: 048
     Dates: start: 20090925, end: 20101215
  2. CELECOXIB,IBUPROFEN,NAPROXEN,PLACEBO (CODE NOT BROKEN) [Suspect]
     Indication: OSTEOARTHRITIS
     Dosage: THREE TIMES A DAY
     Route: 048
     Dates: start: 20090926, end: 20101215
  3. CELECOXIB,IBUPROFEN,NAPROXEN,PLACEBO (CODE NOT BROKEN) [Suspect]
     Indication: RHEUMATOID ARTHRITIS
     Dosage: THREE TIMES A DAY
     Route: 048
     Dates: start: 20090926, end: 20101215

REACTIONS (10)
  - Diverticulitis intestinal haemorrhagic [Recovered/Resolved]
  - Large intestinal ulcer [Recovered/Resolved]
  - Constipation [Recovered/Resolved]
  - Spinal compression fracture [Not Recovered/Not Resolved]
  - Anaemia [Recovered/Resolved]
  - Back pain [Unknown]
  - Dehydration [Recovered/Resolved]
  - Nausea [Recovered/Resolved]
  - Vomiting [Recovered/Resolved]
  - Diarrhoea [Unknown]
